FAERS Safety Report 7013664-3 (Version None)
Quarter: 2010Q3

REPORT INFORMATION
  Report Type: 
  Country: None (occurrence: None)
  Receive Date: 20100924
  Receipt Date: 20100917
  Transmission Date: 20110219
  Serious: Yes (Death, Hospitalization)
  Sender: FDA-Public Use
  Company Number: FR-ELI_LILLY_AND_COMPANY-FR201007000250

PATIENT
  Sex: Female

DRUGS (14)
  1. ALIMTA [Suspect]
     Indication: LUNG ADENOCARCINOMA
     Dosage: 500 MG/M2, EVERY THREE WEEKS
     Route: 042
     Dates: start: 20091208
  2. CISPLATIN [Concomitant]
     Indication: LUNG ADENOCARCINOMA
     Dosage: 120 MG, UNKNOWN
     Route: 042
     Dates: start: 20091208
  3. SPECIAFOLDINE [Concomitant]
     Indication: VITAMIN SUPPLEMENTATION
     Dosage: 0.4 MG, DAILY (1/D)
     Route: 048
     Dates: start: 20091203
  4. DEXAMETHASONE [Concomitant]
     Indication: PROPHYLAXIS
     Dosage: 4 MG, 2/D
     Route: 065
     Dates: start: 20091207, end: 20091209
  5. VITAMIN B-12 [Concomitant]
     Indication: VITAMIN SUPPLEMENTATION
     Dosage: 1000 UG, UNKNOWN
     Route: 030
     Dates: start: 20091203
  6. CORTANCYL [Concomitant]
     Indication: PROPHYLAXIS
     Dosage: UNK, UNKNOWN
     Route: 065
     Dates: start: 20091209, end: 20100104
  7. EMEND [Concomitant]
     Dosage: 120 MG, UNKNOWN
     Route: 065
     Dates: start: 20091208, end: 20091208
  8. ONDANSETRON [Concomitant]
     Dosage: 8 MG, UNKNOWN
     Route: 065
     Dates: start: 20091208, end: 20091208
  9. METOCLOPRAMIDE [Concomitant]
     Dosage: 10 MG, UNKNOWN
     Route: 065
     Dates: start: 20091208, end: 20091208
  10. BI-PROFENID [Concomitant]
     Indication: CHEST PAIN
     Dosage: 150 MG, DAILY (1/D)
     Route: 065
     Dates: start: 20091101
  11. ACETAMINOPHEN W/ PROPOXYPHENE HCL [Concomitant]
     Indication: CHEST PAIN
     Dosage: UNK, UNK
     Dates: start: 20091101
  12. NEXIUM [Concomitant]
     Dosage: UNK, UNKNOWN
     Route: 065
     Dates: start: 20091101
  13. IMOVANE [Concomitant]
     Dosage: UNK, UNKNOWN
     Route: 065
     Dates: start: 20091205
  14. SPIRAMYCIN [Concomitant]
     Indication: INTERSTITIAL LUNG DISEASE
     Dosage: UNK, UNKNOWN
     Route: 065

REACTIONS (3)
  - INTERSTITIAL LUNG DISEASE [None]
  - MALIGNANT NEOPLASM PROGRESSION [None]
  - PULMONARY FIBROSIS [None]
